FAERS Safety Report 9409936 (Version 2)
Quarter: 2013Q3

REPORT INFORMATION
  Report Type: Report from Study
  Country: CO (occurrence: CO)
  Receive Date: 20130719
  Receipt Date: 20130827
  Transmission Date: 20140515
  Serious: Yes (Death)
  Sender: FDA-Public Use
  Company Number: CO-SANOFI-AVENTIS-2013SA070986

PATIENT
  Age: 66 Year
  Sex: Female

DRUGS (5)
  1. LANTUS [Suspect]
     Indication: DIABETES MELLITUS
     Dosage: DOSE:10 UNIT(S)
     Route: 058
     Dates: start: 201212, end: 20130728
  2. LOSARTAN [Suspect]
     Indication: HYPERTENSION
     Route: 048
     Dates: end: 20130728
  3. ACETAMINOPHEN [Concomitant]
     Indication: PAIN
     Route: 048
     Dates: start: 201306, end: 20130728
  4. FUROSEMIDE [Concomitant]
     Route: 048
     Dates: end: 20130728
  5. CEPHALEXIN [Concomitant]
     Route: 048
     Dates: end: 20130728

REACTIONS (5)
  - Dizziness [Fatal]
  - Fall [Fatal]
  - Hip fracture [Fatal]
  - Lower limb fracture [Fatal]
  - Hyperglycaemia [Fatal]
